FAERS Safety Report 4547249-5 (Version None)
Quarter: 2005Q1

REPORT INFORMATION
  Report Type: 
  Country: None (occurrence: None)
  Receive Date: 20050107
  Receipt Date: 20041019
  Transmission Date: 20050727
  Serious: Yes (Hospitalization)
  Sender: FDA-Public Use
  Company Number: DE-MERCK-0410DEU00538

PATIENT
  Age: 53 Year
  Sex: Male
  Weight: 92 kg

DRUGS (8)
  1. VIOXX [Suspect]
     Indication: CERVICOBRACHIAL SYNDROME
     Route: 048
     Dates: start: 20020801, end: 20040101
  2. VIOXX [Suspect]
     Indication: CAUDA EQUINA SYNDROME
     Route: 048
     Dates: start: 20020801, end: 20040101
  3. ISOSORBIDE DINITRATE [Concomitant]
     Route: 048
     Dates: start: 20020901
  4. IODINE [Concomitant]
     Route: 048
     Dates: start: 20021001
  5. FLUPIRTINE MALEATE [Concomitant]
     Route: 065
     Dates: start: 20020801, end: 20040101
  6. TETRAZEPAM [Concomitant]
     Route: 048
     Dates: start: 20020801, end: 20040101
  7. TILIDINE HYDROCHLORIDE [Concomitant]
     Route: 048
     Dates: start: 20000101, end: 20040801
  8. MOMETASONE FUROATE [Concomitant]
     Route: 065

REACTIONS (5)
  - BUNDLE BRANCH BLOCK [None]
  - CARDIAC FAILURE [None]
  - ELECTROCARDIOGRAM REPOLARISATION ABNORMALITY [None]
  - SCAN MYOCARDIAL PERFUSION ABNORMAL [None]
  - SOMATOFORM DISORDER [None]
